FAERS Safety Report 4625042-2 (Version None)
Quarter: 2005Q2

REPORT INFORMATION
  Report Type: 
  Country: None (occurrence: None)
  Receive Date: 20050401
  Receipt Date: 20050217
  Transmission Date: 20051028
  Serious: Yes (Hospitalization, Other)
  Sender: FDA-Public Use
  Company Number: DE-BRISTOL-MYERS SQUIBB COMPANY-12882171

PATIENT
  Age: 50 Year
  Sex: Female
  Weight: 50 kg

DRUGS (3)
  1. ENDOXAN [Suspect]
     Indication: BREAST CANCER
     Route: 048
  2. FLUOROURACIL [Suspect]
     Indication: BREAST CANCER
     Dosage: 2 TREATMENTS ON DAYS 1 AND 8
     Route: 042
  3. EPIRUBICIN [Suspect]
     Indication: BREAST CANCER
     Dosage: 2 TREATMENTS ON DAYS 1 AND 8
     Route: 042

REACTIONS (5)
  - ACUTE STRESS DISORDER [None]
  - ALOPECIA TOTALIS [None]
  - DYSPHAGIA [None]
  - MOUTH ULCERATION [None]
  - NASOPHARYNGITIS [None]
